FAERS Safety Report 24556514 (Version 1)
Quarter: 2024Q4

REPORT INFORMATION
  Report Type: Spontaneous
  Country: US (occurrence: None)
  Receive Date: 20241027
  Receipt Date: 20241027
  Transmission Date: 20250115
  Serious: Yes (Disabling)
  Sender: Public
  Company Number: None

PATIENT
  Age: 11 Year
  Sex: Male
  Weight: 44.1 kg

DRUGS (1)
  1. GUANFACINE [Suspect]
     Active Substance: GUANFACINE
     Indication: Tic
     Dosage: FREQUENCY : TWICE A DAY;?
     Route: 048
     Dates: start: 20240911, end: 20241009

REACTIONS (8)
  - Mood swings [None]
  - Aggression [None]
  - Suicidal ideation [None]
  - Dyskinesia [None]
  - Therapy change [None]
  - Drug ineffective [None]
  - Feeling abnormal [None]
  - Palpitations [None]

NARRATIVE: CASE EVENT DATE: 20240930
